FAERS Safety Report 6312338-1 (Version None)
Quarter: 2009Q3

REPORT INFORMATION
  Report Type: 
  Country: None (occurrence: None)
  Receive Date: 20090817
  Receipt Date: 20090806
  Transmission Date: 20100115
  Serious: Yes (Other)
  Sender: FDA-Public Use
  Company Number: PHHY2009CL33107

PATIENT
  Age: 67 Year
  Sex: Female

DRUGS (1)
  1. TAREG [Suspect]
     Dosage: 160 MG

REACTIONS (1)
  - CEREBROVASCULAR ACCIDENT [None]
